FAERS Safety Report 6985123-5 (Version None)
Quarter: 2010Q3

REPORT INFORMATION
  Report Type: 
  Country: None (occurrence: None)
  Receive Date: 20100915
  Receipt Date: 20100908
  Transmission Date: 20110219
  Serious: Yes (Hospitalization)
  Sender: FDA-Public Use
  Company Number: JP-ROCHE-704565

PATIENT
  Sex: Male

DRUGS (8)
  1. ACTEMRA [Suspect]
     Indication: RHEUMATOID ARTHRITIS
     Route: 041
     Dates: start: 20100316, end: 20100316
  2. ACTEMRA [Suspect]
     Dosage: NOTE: DOSAGE IS UNCERTAIN
     Route: 041
     Dates: start: 20100415
  3. RHEUMATREX [Concomitant]
     Route: 048
     Dates: start: 20060817, end: 20100513
  4. PREDONINE [Concomitant]
     Route: 048
     Dates: start: 20060817
  5. LORFENAMIN [Concomitant]
     Route: 048
     Dates: start: 20080424, end: 20100513
  6. MUCOSTA [Concomitant]
     Route: 048
     Dates: start: 20080424, end: 20100513
  7. PROGRAFT [Concomitant]
     Dosage: PROGRAF(TACROLIMUS HYDRATE)
     Route: 048
     Dates: start: 20080828, end: 20100513
  8. BENET [Concomitant]
     Dosage: BENET(SODIUM RISEDRONATE HYDRATE)
     Route: 048
     Dates: start: 20060817, end: 20100513

REACTIONS (3)
  - ASCITES [None]
  - HEPATIC ATROPHY [None]
  - OEDEMA PERIPHERAL [None]
